FAERS Safety Report 7817100-6 (Version None)
Quarter: 2011Q4

REPORT INFORMATION
  Report Type: 
  Country: None (occurrence: None)
  Receive Date: 20111017
  Receipt Date: 20111012
  Transmission Date: 20120403
  Serious: Yes (Death, Hospitalization, Other)
  Sender: FDA-Public Use
  Company Number: GB-PFIZER INC-2011228164

PATIENT
  Age: 27 Year
  Sex: Female

DRUGS (4)
  1. IBUPROFEN [Suspect]
     Dosage: 7000 MG, 1X/DAY
  2. CO-DYDRAMOL [Suspect]
     Dosage: 8 G, UNK
     Route: 048
  3. DICLOFENAC [Suspect]
     Dosage: 2800 MG, 1X/DAY
  4. FERROUS SULFATE TAB [Suspect]
     Dosage: 86 TABLETS (EQUIVALENT TO 103MG/KG OF ELEMENTAL IRON)
     Route: 048

REACTIONS (24)
  - INTERNATIONAL NORMALISED RATIO INCREASED [None]
  - BLOOD PHOSPHORUS DECREASED [None]
  - ALANINE AMINOTRANSFERASE INCREASED [None]
  - BLOOD IRON INCREASED [None]
  - SHOCK [None]
  - INTENTIONAL OVERDOSE [None]
  - BLOOD CREATININE INCREASED [None]
  - MULTIPLE DRUG OVERDOSE [None]
  - HEPATOTOXICITY [None]
  - ACIDOSIS [None]
  - BLOOD BILIRUBIN INCREASED [None]
  - HYPOTENSION [None]
  - PLATELET COUNT DECREASED [None]
  - MULTI-ORGAN FAILURE [None]
  - BLOOD CALCIUM DECREASED [None]
  - VOMITING [None]
  - METABOLIC ACIDOSIS [None]
  - ELECTROLYTE IMBALANCE [None]
  - ACUTE HEPATIC FAILURE [None]
  - ANAEMIA [None]
  - COAGULOPATHY [None]
  - HAEMATEMESIS [None]
  - NAUSEA [None]
  - SINUS TACHYCARDIA [None]
